FAERS Safety Report 12772530 (Version 1)
Quarter: 2016Q3

REPORT INFORMATION
  Report Type: Spontaneous
  Country: US (occurrence: US)
  Receive Date: 20160922
  Receipt Date: 20160922
  Transmission Date: 20161109
  Serious: No
  Sender: FDA-Public Use
  Company Number: US-TEVA-695031USA

PATIENT
  Age: 50 Year
  Sex: Female

DRUGS (18)
  1. BISACODYL. [Concomitant]
     Active Substance: BISACODYL
  2. DEXILANT [Concomitant]
     Active Substance: DEXLANSOPRAZOLE
  3. IRBESARTAN. [Concomitant]
     Active Substance: IRBESARTAN
  4. VESICARE [Concomitant]
     Active Substance: SOLIFENACIN SUCCINATE
  5. METFORMIN [Concomitant]
     Active Substance: METFORMIN HYDROCHLORIDE
  6. TAMSULOSIN [Concomitant]
     Active Substance: TAMSULOSIN
  7. COPAXONE [Suspect]
     Active Substance: GLATIRAMER ACETATE
     Indication: MULTIPLE SCLEROSIS
     Route: 058
     Dates: start: 20100310
  8. MECLIZINE [Concomitant]
     Active Substance: MECLIZINE HYDROCHLORIDE
  9. PAXIL [Concomitant]
     Active Substance: PAROXETINE HYDROCHLORIDE
  10. PRAZOSIN [Concomitant]
     Active Substance: PRAZOSIN
  11. DESMOPRESSIN [Concomitant]
     Active Substance: DESMOPRESSIN
  12. RANITIDINE. [Concomitant]
     Active Substance: RANITIDINE
  13. VALACICLOVIR [Concomitant]
     Active Substance: VALACYCLOVIR HYDROCHLORIDE
  14. BACLOFEN. [Concomitant]
     Active Substance: BACLOFEN
  15. IBUPROFEN. [Concomitant]
     Active Substance: IBUPROFEN
  16. SIMVASTATIN. [Concomitant]
     Active Substance: SIMVASTATIN
  17. TRAZODONE [Concomitant]
     Active Substance: TRAZODONE HYDROCHLORIDE
  18. CITALOPRAM [Concomitant]
     Active Substance: CITALOPRAM HYDROBROMIDE

REACTIONS (2)
  - Fall [Recovered/Resolved]
  - Foot fracture [Unknown]

NARRATIVE: CASE EVENT DATE: 201607
